FAERS Safety Report 5231787-6 (Version None)
Quarter: 2007Q1

REPORT INFORMATION
  Report Type: 
  Country: None (occurrence: None)
  Receive Date: 20070206
  Receipt Date: 20070130
  Transmission Date: 20070707
  Serious: Yes (Hospitalization, Other)
  Sender: FDA-Public Use
  Company Number: CN-ABBOTT-07P-035-0357602-00

PATIENT
  Age: 30 Year
  Sex: Female

DRUGS (1)
  1. VALPROATE SODIUM [Suspect]
     Indication: EPILEPSY
     Route: 048

REACTIONS (4)
  - ANGIOEDEMA [None]
  - HYPERSENSITIVITY [None]
  - HYPERTHERMIA [None]
  - RASH PRURITIC [None]
